FAERS Safety Report 12382364 (Version 2)
Quarter: 2016Q2

REPORT INFORMATION
  Report Type: Report from Study
  Country: HT (occurrence: HT)
  Receive Date: 20160518
  Receipt Date: 20160614
  Transmission Date: 20160815
  Serious: Yes (Hospitalization)
  Sender: FDA-Public Use
  Company Number: HT-ABBVIE-16P-073-1617228-00

PATIENT
  Age: 38 Year
  Sex: Female

DRUGS (3)
  1. ISONIAZID W/RIFAMPICIN [Concomitant]
     Active Substance: ISONIAZID\RIFAMPIN
     Indication: TUBERCULOSIS
     Dosage: QAM - EVERY MORNING
     Route: 048
     Dates: start: 20160129, end: 20160424
  2. KALETRA [Suspect]
     Active Substance: LOPINAVIR\RITONAVIR
     Indication: HIV INFECTION
     Route: 048
     Dates: start: 20151202
  3. TDF/3TC [Concomitant]
     Indication: ANTIRETROVIRAL THERAPY
     Route: 048
     Dates: end: 20160424

REACTIONS (1)
  - Gastroenteritis [Recovered/Resolved]

NARRATIVE: CASE EVENT DATE: 20160425
